FAERS Safety Report 5903786-X (Version None)
Quarter: 2008Q3

REPORT INFORMATION
  Report Type: 
  Country: None (occurrence: None)
  Receive Date: 20080930
  Receipt Date: 20080922
  Transmission Date: 20090109
  Serious: Yes (Hospitalization)
  Sender: FDA-Public Use
  Company Number: US-ASTRAZENECA-2008UW14230

PATIENT
  Age: 64 Year
  Sex: Female
  Weight: 53.5 kg

DRUGS (5)
  1. SYMBICORT [Suspect]
     Indication: ASTHMA
     Dosage: 160/4.5 UG TWO PUFFS BID
     Route: 055
     Dates: start: 20080622
  2. SYMBICORT [Suspect]
     Indication: CHRONIC OBSTRUCTIVE PULMONARY DISEASE
     Dosage: 160/4.5 UG TWO PUFFS BID
     Route: 055
     Dates: start: 20080622
  3. NORPACE [Concomitant]
  4. SPIRIVA [Concomitant]
  5. ALBUTEROL [Concomitant]

REACTIONS (6)
  - BLOOD PRESSURE INCREASED [None]
  - DEVICE MALFUNCTION [None]
  - GLOSSODYNIA [None]
  - OEDEMA PERIPHERAL [None]
  - PLEURISY [None]
  - PNEUMONIA [None]
